FAERS Safety Report 7116486-8 (Version None)
Quarter: 2010Q4

REPORT INFORMATION
  Report Type: 
  Country: None (occurrence: None)
  Receive Date: 20101115
  Receipt Date: 20101006
  Transmission Date: 20110411
  Serious: Yes (Other)
  Sender: FDA-Public Use
  Company Number: 20109590

PATIENT
  Sex: Female

DRUGS (1)
  1. LIORESAL [Suspect]
     Indication: MUSCLE SPASTICITY
     Dosage: MCG, DAILY, INTRATHECAL
     Route: 037

REACTIONS (8)
  - BLOOD TEST ABNORMAL [None]
  - FEELING JITTERY [None]
  - IMPLANT SITE CELLULITIS [None]
  - IMPLANT SITE HAEMATOMA [None]
  - IMPLANT SITE REACTION [None]
  - MUSCLE SPASMS [None]
  - OVERDOSE [None]
  - WEIGHT INCREASED [None]
